FAERS Safety Report 7075457-0 (Version None)
Quarter: 2010Q4

REPORT INFORMATION
  Report Type: 
  Country: None (occurrence: None)
  Receive Date: 20101030
  Receipt Date: 20100910
  Transmission Date: 20110411
  Serious: No
  Sender: FDA-Public Use
  Company Number: US-WYE-H17501910

PATIENT
  Sex: Male

DRUGS (3)
  1. ALAVERT [Suspect]
     Indication: SINUS CONGESTION
  2. ALAVERT [Suspect]
     Indication: UPPER-AIRWAY COUGH SYNDROME
  3. ALAVERT [Suspect]
     Indication: EAR DISORDER

REACTIONS (1)
  - DRUG INEFFECTIVE [None]
